FAERS Safety Report 4435798-X (Version None)
Quarter: 2004Q3

REPORT INFORMATION
  Report Type: 
  Country: None (occurrence: None)
  Receive Date: 20040726
  Receipt Date: 20040414
  Transmission Date: 20050211
  Serious: No
  Sender: FDA-Public Use
  Company Number: USA040465032

PATIENT
  Age: 54 Year
  Sex: Female

DRUGS (6)
  1. FORTEO [Suspect]
     Indication: OSTEOPOROSIS
     Dosage: 20 UG 1 DAY
     Dates: start: 20030701, end: 20040411
  2. ZYPREXA [Concomitant]
  3. EFFEXOR [Concomitant]
  4. TOPAMAX [Concomitant]
  5. MULTIVITAMIN [Concomitant]
  6. LODINE XL [Concomitant]

REACTIONS (3)
  - BLOOD CALCIUM INCREASED [None]
  - FATIGUE [None]
  - MYALGIA [None]
